FAERS Safety Report 4633837-4 (Version None)
Quarter: 2005Q2

REPORT INFORMATION
  Report Type: 
  Country: None (occurrence: None)
  Receive Date: 20050411
  Receipt Date: 20050217
  Transmission Date: 20051028
  Serious: Yes (Other)
  Sender: FDA-Public Use
  Company Number: CHPA2005US00706

PATIENT
  Age: 27 Year
  Sex: Female
  Weight: 83.9 kg

DRUGS (3)
  1. THERAFLU HOT LIQ MS NT CHERRY TURQOISE (NCH) (CHLORPHENIRAMINE MALEATE [Suspect]
     Indication: NASOPHARYNGITIS
     Dosage: 1 PACKET, ONCE/SINGLE,ORAL
     Route: 048
     Dates: start: 20050216, end: 20050216
  2. TEGRETOL [Concomitant]
  3. KEPPRA [Concomitant]

REACTIONS (3)
  - CONDITION AGGRAVATED [None]
  - CONVULSION [None]
  - REACTION TO MEDICAL AGENT PRESERVATIVES [None]
